FAERS Safety Report 13741312 (Version 1)
Quarter: 2017Q3

REPORT INFORMATION
  Report Type: Spontaneous
  Country: US (occurrence: US)
  Receive Date: 20170711
  Receipt Date: 20170711
  Transmission Date: 20171127
  Serious: Yes (Disabling)
  Sender: FDA-Public Use
  Company Number: None

PATIENT
  Age: 66 Year
  Sex: Male
  Weight: 83.25 kg

DRUGS (1)
  1. ELIQUIS [Suspect]
     Active Substance: APIXABAN
     Indication: PULMONARY EMBOLISM
     Dates: start: 20170209, end: 20170711

REACTIONS (7)
  - Tendon pain [None]
  - Ligament pain [None]
  - Musculoskeletal stiffness [None]
  - Hypoaesthesia [None]
  - Lymphoedema [None]
  - Muscle spasms [None]
  - Pruritus [None]

NARRATIVE: CASE EVENT DATE: 20170213
